FAERS Safety Report 24713334 (Version 1)
Quarter: 2024Q4

REPORT INFORMATION
  Report Type: Spontaneous
  Country: US (occurrence: US)
  Receive Date: 20241209
  Receipt Date: 20241209
  Transmission Date: 20250115
  Serious: No
  Sender: REGENERON
  Company Number: US-REGENERON PHARMACEUTICALS, INC.-2024-029218

PATIENT
  Sex: Female

DRUGS (3)
  1. EYLEA [Suspect]
     Active Substance: AFLIBERCEPT
     Indication: Neovascular age-related macular degeneration
     Dosage: 2 MG, 4-6 WEEKS, LEFT EYE (PATIENT ON TREATMENT FOR BOTH EYES) (FORMULATION: GERRESHEIMER PFS)
     Dates: start: 202212
  2. EYLEA [Suspect]
     Active Substance: AFLIBERCEPT
     Dosage: 2 MG, 4-6 WEEKS, RIGHT EYE (FORMULATION: GERRESHEIMER PFS)
     Dates: start: 202212, end: 20240126
  3. EYLEA [Suspect]
     Active Substance: AFLIBERCEPT
     Dosage: 2 MG, 4-6 WEEKS, RIGHT EYE (FORMULATION: PFS GERRESHEIMER)
     Dates: start: 20240220

REACTIONS (1)
  - Intentional dose omission [Recovered/Resolved]

NARRATIVE: CASE EVENT DATE: 20240126
